FAERS Safety Report 6710593-7 (Version None)
Quarter: 2010Q2

REPORT INFORMATION
  Report Type: 
  Country: None (occurrence: None)
  Receive Date: 20100504
  Receipt Date: 20100430
  Transmission Date: 20101027
  Serious: Yes (Hospitalization)
  Sender: FDA-Public Use
  Company Number: MX-ROCHE-533875

PATIENT
  Sex: Female
  Weight: 47 kg

DRUGS (15)
  1. TOCILIZUMAB [Suspect]
     Indication: RHEUMATOID ARTHRITIS
     Dosage: FORM REPORTED AS VIAL.THERAPY PERMANENTLY DISCONTINUED.
     Route: 042
     Dates: start: 20060201, end: 20071108
  2. PREDNISONE [Concomitant]
     Route: 048
     Dates: start: 20051129
  3. FOLIC ACID [Concomitant]
     Route: 048
     Dates: start: 20040524, end: 20071127
  4. FOLIC ACID [Concomitant]
     Dosage: FREQUENCY: BIS
     Route: 048
     Dates: start: 20080103
  5. OMEPRAZOLE [Concomitant]
     Route: 048
     Dates: start: 20040524, end: 20071127
  6. OMEPRAZOLE [Concomitant]
     Route: 048
     Dates: start: 20071228
  7. CLIMENE [Concomitant]
     Dates: start: 20030101
  8. LOSARTAN POTASSIUM AND HYDROCHLOROTHIAZIDE [Concomitant]
     Dosage: DOSE: 50/12.5 MG
     Route: 048
     Dates: start: 20010320, end: 20071127
  9. METHOTREXATE [Concomitant]
     Dosage: REPORTED AS METOTHEXATE.
     Route: 048
     Dates: start: 19910628, end: 20071127
  10. METHOTREXATE [Concomitant]
     Dosage: DRUG REPORTED AS 15 MG PER WEEK, EVERY NIGHT
     Route: 048
     Dates: start: 20080103
  11. PARACETAMOL [Concomitant]
     Dates: start: 19890216, end: 20071127
  12. PARACETAMOL [Concomitant]
     Dates: start: 20080103
  13. DICLOFENAC [Concomitant]
     Route: 048
     Dates: start: 19890216, end: 20071127
  14. DICLOFENAC [Concomitant]
     Route: 048
  15. DICLOFENAC [Concomitant]
     Route: 048

REACTIONS (2)
  - BICYTOPENIA [None]
  - EMPYEMA [None]
